FAERS Safety Report 10419564 (Version 1)
Quarter: 2014Q2

REPORT INFORMATION
  Report Type: Spontaneous
  Country: US (occurrence: None)
  Receive Date: 20140618
  Receipt Date: 20140618
  Transmission Date: 20141212
  Serious: Yes (Other)
  Sender: FDA-Public Use
  Company Number: 087914

PATIENT
  Sex: Male
  Weight: 77.1 kg

DRUGS (8)
  1. LACOSAMIDE [Suspect]
     Indication: CONVULSION
  2. KEPPRA [Suspect]
     Indication: CONVULSION
  3. LAMICTAL [Concomitant]
  4. KEPPRA [Concomitant]
  5. PHENOBARBITAL [Concomitant]
  6. DIAMOX [Concomitant]
  7. DILANTIN [Concomitant]
  8. KEPPRA [Concomitant]

REACTIONS (2)
  - Fatigue [None]
  - Convulsion [None]
